FAERS Safety Report 16172064 (Version 3)
Quarter: 2019Q3

REPORT INFORMATION
  Report Type: Spontaneous
  Country: KR (occurrence: KR)
  Receive Date: 20190409
  Receipt Date: 20190718
  Transmission Date: 20191004
  Serious: Yes (Hospitalization, Other)
  Sender: FDA-Public Use
  Company Number: KR-009507513-1904KOR001798

PATIENT
  Sex: Male

DRUGS (6)
  1. KEYTRUDA [Suspect]
     Active Substance: PEMBROLIZUMAB
     Dosage: DOSE: 1, DAYS: 1, TIMES: 1
     Dates: start: 20190415, end: 20190415
  2. KEYTRUDA [Suspect]
     Active Substance: PEMBROLIZUMAB
     Dosage: UNK
     Dates: start: 20190527, end: 20190527
  3. KEYTRUDA [Suspect]
     Active Substance: PEMBROLIZUMAB
     Dosage: STRENGTH: 0.1 G/ 4ML; DOSE: 1, DAYS: 1, TIMES: 1
     Dates: start: 20190617, end: 20190617
  4. KEYTRUDA [Suspect]
     Active Substance: PEMBROLIZUMAB
     Indication: DEDIFFERENTIATED LIPOSARCOMA
     Dosage: DOSE: 1, TIMES: 1
     Dates: start: 20190325, end: 20190325
  5. KEYTRUDA [Suspect]
     Active Substance: PEMBROLIZUMAB
     Dosage: DOSE: 1, DAYS: 1, TIMES: 1
     Dates: start: 20190508, end: 20190508
  6. KEYTRUDA [Suspect]
     Active Substance: PEMBROLIZUMAB
     Dosage: QUANTITY: 1, DAYS: 1
     Dates: start: 20190708

REACTIONS (5)
  - Transfusion [Unknown]
  - Transfusion [Unknown]
  - Inappropriate schedule of product administration [Unknown]
  - Adverse event [Unknown]
  - Product use in unapproved indication [Unknown]

NARRATIVE: CASE EVENT DATE: 201903
